FAERS Safety Report 13466433 (Version 1)
Quarter: 2017Q2

REPORT INFORMATION
  Report Type: Spontaneous
  Country: US (occurrence: US)
  Receive Date: 20170421
  Receipt Date: 20170421
  Transmission Date: 20170830
  Serious: Yes (Disabling)
  Sender: FDA-Public Use
  Company Number: None

PATIENT
  Age: 52 Year
  Sex: Female
  Weight: 68.04 kg

DRUGS (10)
  1. HALOPERIDOL. [Suspect]
     Active Substance: HALOPERIDOL
     Indication: SCHIZOAFFECTIVE DISORDER
     Dosage: QUANITY - 2 PILLS DAILY?ROUTE - BY MOUTH AND INJECTION
     Route: 048
     Dates: start: 1997
  2. NEBULIZER [Concomitant]
     Active Substance: DEVICE
  3. HALDOL [Concomitant]
     Active Substance: HALOPERIDOL
  4. LISINOPRIL. [Concomitant]
     Active Substance: LISINOPRIL
  5. VITAMINS [Concomitant]
     Active Substance: VITAMINS
  6. BERZETRYPINE [Concomitant]
  7. VITAMIN E [Concomitant]
     Active Substance: .ALPHA.-TOCOPHEROL
  8. OMEGA FISH OIL [Concomitant]
     Active Substance: FISH OIL\OMEGA-3 FATTY ACIDS
  9. RANITIDINE. [Concomitant]
     Active Substance: RANITIDINE
  10. NORVASC [Concomitant]
     Active Substance: AMLODIPINE BESYLATE

REACTIONS (1)
  - Unevaluable event [None]
